FAERS Safety Report 15425907 (Version 1)
Quarter: 2018Q4

REPORT INFORMATION
  Report Type: Spontaneous
  Country: RU (occurrence: RU)
  Receive Date: 20180925
  Receipt Date: 20180925
  Transmission Date: 20190204
  Serious: Yes (Other)
  Sender: FDA-Public Use
  Company Number: RU-ASCEND THERAPEUTICS-2055331

PATIENT
  Age: 47 Year
  Sex: Female

DRUGS (2)
  1. UTROGESTAN [Suspect]
     Active Substance: PROGESTERONE
     Route: 067
     Dates: start: 20180419, end: 20180619
  2. ESTROGEL [Suspect]
     Active Substance: ESTRADIOL
     Indication: MENOPAUSE
     Route: 062
     Dates: start: 20180419, end: 20180619

REACTIONS (1)
  - Peripheral venous disease [Recovered/Resolved]

NARRATIVE: CASE EVENT DATE: 20180619
